FAERS Safety Report 12648664 (Version 2)
Quarter: 2017Q1

REPORT INFORMATION
  Report Type: Report from Study
  Country: DE (occurrence: DE)
  Receive Date: 20160812
  Receipt Date: 20170207
  Transmission Date: 20170428
  Serious: Yes (Other)
  Sender: FDA-Public Use
  Company Number: DE-INCYTE CORPORATION-2014IN001459

PATIENT
  Age: 78 Year
  Sex: Female
  Weight: 80 kg

DRUGS (14)
  1. INCB018424 [Suspect]
     Active Substance: RUXOLITINIB
     Dosage: 10 MG, QD (TWICE)
     Route: 048
     Dates: start: 20140408, end: 20140421
  2. INCB018424 [Suspect]
     Active Substance: RUXOLITINIB
     Dosage: 20 MG, QD (TWICE)
     Route: 048
     Dates: start: 20150421, end: 20160119
  3. GLIVEC [Suspect]
     Active Substance: IMATINIB MESYLATE
     Indication: GENE MUTATION
     Dosage: 400 MG, UNK
     Route: 065
     Dates: start: 20140818
  4. BISOPROLOL [Concomitant]
     Active Substance: BISOPROLOL
     Indication: HYPERTENSION
     Dosage: 5 MG, UNK
     Route: 065
     Dates: start: 20100810
  5. MULTAQ [Concomitant]
     Active Substance: DRONEDARONE
     Indication: PRODUCT USED FOR UNKNOWN INDICATION
     Dosage: 800 MG, UNK
     Route: 065
     Dates: start: 20100730
  6. RAMIPRIL. [Concomitant]
     Active Substance: RAMIPRIL
     Indication: HYPERTENSION
     Dosage: 10 MG, UNK
     Route: 065
     Dates: start: 20100810
  7. INCB018424 [Suspect]
     Active Substance: RUXOLITINIB
     Dosage: 20 MG, QD (TWICE)
     Route: 048
     Dates: start: 20160224
  8. VOTUM PLUS [Concomitant]
     Active Substance: HYDROCHLOROTHIAZIDE\OLMESARTAN MEDOXOMIL
     Indication: HYPERTENSION
     Dosage: 40 MG, UNK
     Route: 065
     Dates: start: 20070129
  9. PANTOPRAZOLE [Concomitant]
     Active Substance: PANTOPRAZOLE SODIUM
     Indication: PRODUCT USED FOR UNKNOWN INDICATION
     Dosage: 40 MG, UNK
     Route: 065
  10. XARELTO [Concomitant]
     Active Substance: RIVAROXABAN
     Indication: PRODUCT USED FOR UNKNOWN INDICATION
     Dosage: UNK
     Route: 065
     Dates: start: 20100730
  11. INCB018424 [Suspect]
     Active Substance: RUXOLITINIB
     Dosage: 30 MG, QD (TWICE)
     Route: 048
     Dates: start: 20140426, end: 20150420
  12. INCB018424 [Suspect]
     Active Substance: RUXOLITINIB
     Dosage: 10 MG, QD
     Route: 048
     Dates: start: 20160120, end: 20160223
  13. INCB018424 [Suspect]
     Active Substance: RUXOLITINIB
     Indication: MYELOFIBROSIS
     Dosage: 30 MG, QD (TWICE)
     Route: 048
     Dates: start: 20140128, end: 20140407
  14. INCB018424 [Suspect]
     Active Substance: RUXOLITINIB
     Dosage: 20 MG, QD
     Route: 048
     Dates: start: 20140422, end: 20140425

REACTIONS (13)
  - Thrombocytopenia [Recovered/Resolved]
  - Gamma-glutamyltransferase increased [Not Recovered/Not Resolved]
  - Anaemia [Recovered/Resolved]
  - Malignant ascites [Recovered/Resolved]
  - Dizziness [Recovered/Resolved]
  - Leukopenia [Recovered/Resolved]
  - Night sweats [Recovered/Resolved]
  - Blepharitis [Not Recovered/Not Resolved]
  - Anaemia [Recovered/Resolved]
  - Gene mutation [Recovered/Resolved]
  - Alanine aminotransferase increased [Not Recovered/Not Resolved]
  - Fatigue [Recovered/Resolved]
  - Anaemia [Recovering/Resolving]

NARRATIVE: CASE EVENT DATE: 20140407
